FAERS Safety Report 9369773 (Version 1)
Quarter: 2013Q2

REPORT INFORMATION
  Report Type: Spontaneous
  Country: US (occurrence: None)
  Receive Date: 20130621
  Receipt Date: 20130621
  Transmission Date: 20140414
  Serious: Yes (Hospitalization)
  Sender: FDA-Public Use
  Company Number: CABO-13002835

PATIENT
  Age: 75 Year
  Sex: Female

DRUGS (5)
  1. COMETRIQ [Suspect]
     Indication: THYROID CANCER
     Route: 048
     Dates: start: 20130524, end: 20130604
  2. SYNTHROID (LEVOTHYROXINE SODIUM) [Concomitant]
  3. CALCITROL (CALCITRIOL) [Concomitant]
  4. FOSAMAX (ALENDRONATE SODIUM) [Concomitant]
  5. NEXAVAR (SORAFENIB TOSILATE) [Concomitant]

REACTIONS (6)
  - Loss of consciousness [None]
  - Disorientation [None]
  - Blood pressure increased [None]
  - Headache [None]
  - Asthenia [None]
  - Abasia [None]
